FAERS Safety Report 9959669 (Version 1)
Quarter: 2014Q1

REPORT INFORMATION
  Report Type: Report from Study
  Country: US (occurrence: US)
  Receive Date: 20140305
  Receipt Date: 20140305
  Transmission Date: 20141002
  Serious: No
  Sender: FDA-Public Use
  Company Number: US-ABBVIE-13P-163-1102979-00

PATIENT
  Age: 16 Year
  Sex: Female

DRUGS (7)
  1. HUMIRA [Suspect]
     Indication: JUVENILE IDIOPATHIC ARTHRITIS
     Dates: start: 20130607
  2. MELOXICAM [Concomitant]
     Indication: JUVENILE IDIOPATHIC ARTHRITIS
  3. AMITRIPTYLINE [Concomitant]
     Indication: MIGRAINE
     Dosage: AT NIGHT
  4. FOLIC ACID [Concomitant]
     Indication: VITAMIN SUPPLEMENTATION
     Dosage: 400 MCG DAILY
  5. LEFLUNOMIDE [Concomitant]
     Indication: JUVENILE IDIOPATHIC ARTHRITIS
     Dosage: 10MG DAILY
  6. PREDNISONE [Concomitant]
     Indication: JUVENILE IDIOPATHIC ARTHRITIS
     Dosage: 10 MG DAILY
  7. EQUATE [Concomitant]
     Indication: HYPERCHLORHYDRIA
     Dosage: 25 MG DAILY

REACTIONS (2)
  - Dyspnoea [Not Recovered/Not Resolved]
  - Abdominal pain upper [Not Recovered/Not Resolved]
